FAERS Safety Report 13282466 (Version 1)
Quarter: 2017Q1

REPORT INFORMATION
  Report Type: Spontaneous
  Country: US (occurrence: US)
  Receive Date: 20170301
  Receipt Date: 20170301
  Transmission Date: 20170428
  Serious: No
  Sender: FDA-Public Use
  Company Number: US-BAUSCH-BL-2016-010154

PATIENT

DRUGS (1)
  1. VISUDYNE [Suspect]
     Active Substance: VERTEPORFIN
     Indication: PHOTODYNAMIC THERAPY
     Route: 065
     Dates: start: 201602

REACTIONS (2)
  - Off label use [Unknown]
  - No adverse event [Unknown]
